FAERS Safety Report 8927700 (Version 1)
Quarter: 2012Q4

REPORT INFORMATION
  Report Type: 
  Country: US (occurrence: US)
  Receive Date: 20121127
  Receipt Date: 20121127
  Transmission Date: 20130627
  Serious: Yes (Hospitalization, Other)
  Sender: FDA-Public Use
  Company Number: PHEH2012US021839

PATIENT
  Sex: Male

DRUGS (3)
  1. GLEEVEC [Suspect]
     Indication: ACUTE LYMPHOCYTIC LEUKAEMIA
     Dosage: 400 mg, QD
     Route: 048
  2. GLEEVEC [Suspect]
     Dosage: 200 mg, BID
     Dates: start: 2005
  3. CHEMOTHERAPEUTICS [Concomitant]

REACTIONS (9)
  - Convulsion [Unknown]
  - Pneumonia [Unknown]
  - Leukaemia recurrent [Unknown]
  - Cerebrovascular accident [Unknown]
  - Aphasia [Unknown]
  - Nocturia [Unknown]
  - Dyspnoea [Unknown]
  - Drug resistance [Unknown]
  - Drug ineffective [Unknown]
